FAERS Safety Report 24335688 (Version 1)
Quarter: 2024Q3

REPORT INFORMATION
  Report Type: Other
  Country: IT (occurrence: IT)
  Receive Date: 20240919
  Receipt Date: 20240919
  Transmission Date: 20241016
  Serious: Yes (Other)
  Sender: Steriscience PTE
  Company Number: IT-PFIZER INC-2019264546

PATIENT
  Age: 38 Year
  Sex: Male
  Weight: 70 kg

DRUGS (2)
  1. VANCOMYCIN [Suspect]
     Active Substance: VANCOMYCIN
     Indication: Product used for unknown indication
     Dosage: 500 MG, 4X/DAY
     Route: 042
  2. MEROPENEM [Suspect]
     Active Substance: MEROPENEM
     Indication: Product used for unknown indication
     Dosage: 1 G, 3X/DAY
     Route: 042

REACTIONS (7)
  - Condition aggravated [None]
  - Leukocytosis [None]
  - Pathogen resistance [None]
  - Pyrexia [None]
  - Thrombocytopenia [None]
  - Chills [None]
  - Hypotension [None]
